FAERS Safety Report 7814457-7 (Version None)
Quarter: 2011Q4

REPORT INFORMATION
  Report Type: 
  Country: None (occurrence: None)
  Receive Date: 20111014
  Receipt Date: 20111012
  Transmission Date: 20120403
  Serious: Yes (Death)
  Sender: FDA-Public Use
  Company Number: US-B.I. PHARMACEUTICALS,INC./RIDGEFIELD-2011-BP-16537BP

PATIENT
  Age: 91 Year
  Sex: Female

DRUGS (12)
  1. COUMADIN [Concomitant]
  2. POTASSIUM [Concomitant]
  3. DIGOXIN [Concomitant]
     Dosage: 0.125 MG
  4. PRAVASTATIN [Concomitant]
     Dosage: 20 MG
  5. LANTUS [Concomitant]
  6. LASIX [Concomitant]
     Dosage: 80 MG
  7. METOPROLOL TARTRATE [Concomitant]
     Dosage: 200 MG
     Dates: start: 20110601
  8. ASPIRIN [Concomitant]
     Dosage: 81 MG
  9. VITAMIN TAB [Concomitant]
  10. PRADAXA [Suspect]
     Indication: ATRIAL FIBRILLATION
     Dosage: 300 MG
     Dates: start: 20110601, end: 20110612
  11. LISINOPRIL [Concomitant]
  12. WELCHOL [Concomitant]

REACTIONS (8)
  - CARDIOGENIC SHOCK [None]
  - UNRESPONSIVE TO STIMULI [None]
  - BRADYCARDIA [None]
  - GASTROINTESTINAL HAEMORRHAGE [None]
  - HYPOTENSION [None]
  - CARDIAC ARREST [None]
  - BLOOD PRESSURE SYSTOLIC DECREASED [None]
  - RECTAL HAEMORRHAGE [None]
